FAERS Safety Report 5962359-3 (Version None)
Quarter: 2008Q4

REPORT INFORMATION
  Report Type: 
  Country: None (occurrence: None)
  Receive Date: 20081121
  Receipt Date: 20081107
  Transmission Date: 20090506
  Serious: Yes (Hospitalization)
  Sender: FDA-Public Use
  Company Number: JP-GENENTECH-271834

PATIENT
  Age: 63 Year
  Sex: Female

DRUGS (4)
  1. AVASTIN [Suspect]
     Indication: LARGE INTESTINE CARCINOMA
     Dosage: 5 MG/KG, 2/MONTH
     Route: 042
     Dates: start: 20080911, end: 20081023
  2. ELPLAT [Suspect]
     Indication: DRUG USE FOR UNKNOWN INDICATION
     Route: 042
  3. FLUOROURACIL [Suspect]
     Indication: DRUG USE FOR UNKNOWN INDICATION
     Route: 042
  4. LEUCOVORIN CALCIUM [Suspect]
     Indication: LARGE INTESTINE CARCINOMA
     Route: 042

REACTIONS (1)
  - CONVULSION [None]
